FAERS Safety Report 4409825-X (Version None)
Quarter: 2004Q3

REPORT INFORMATION
  Report Type: 
  Country: None (occurrence: None)
  Receive Date: 20040727
  Receipt Date: 20040727
  Transmission Date: 20050211
  Serious: No
  Sender: FDA-Public Use
  Company Number: None

PATIENT
  Age: 66 Year
  Sex: Female

DRUGS (2)
  1. HUMIRA [Suspect]
     Indication: RHEUMATOID ARTHRITIS
     Dosage: 40 MG  2X/MONTH  SUBCUTANEOUS
     Route: 058
     Dates: start: 20040609, end: 20040623
  2. METHOTREXATE [Concomitant]

REACTIONS (1)
  - RASH [None]
